FAERS Safety Report 8298684-3 (Version None)
Quarter: 2012Q2

REPORT INFORMATION
  Report Type: 
  Country: None (occurrence: None)
  Receive Date: 20120419
  Receipt Date: 20120412
  Transmission Date: 20120825
  Serious: Yes (Hospitalization)
  Sender: FDA-Public Use
  Company Number: JP-EISAI INC-E2090-00860-SPO-JP

PATIENT
  Sex: Female

DRUGS (5)
  1. ZONISAMIDE [Suspect]
     Indication: EPILEPSY
  2. ZONISAMIDE [Suspect]
     Route: 048
     Dates: start: 19991109, end: 20090108
  3. VALPROIC ACID [Concomitant]
     Indication: EPILEPSY
     Dates: start: 19990205
  4. PHENOBARBITAL TAB [Concomitant]
     Indication: EPILEPSY
     Dates: start: 19981222
  5. MYSTAN [Concomitant]
     Indication: EPILEPSY
     Dates: start: 20051209

REACTIONS (1)
  - CALCULUS URINARY [None]
